FAERS Safety Report 4586049-7 (Version None)
Quarter: 2005Q1

REPORT INFORMATION
  Report Type: 
  Country: None (occurrence: None)
  Receive Date: 20050125
  Receipt Date: 20040921
  Transmission Date: 20050727
  Serious: No
  Sender: FDA-Public Use
  Company Number: USA040978922

PATIENT
  Age: 73 Year
  Sex: Female

DRUGS (12)
  1. FORTEO [Suspect]
     Indication: STEROID THERAPY
  2. AVALIDE [Concomitant]
  3. ARTHROTEC [Concomitant]
  4. CARDIZEM [Concomitant]
  5. IMDUR [Concomitant]
  6. PREDNISONE [Concomitant]
  7. PREVACID [Concomitant]
  8. SYNTHROID [Concomitant]
  9. INSULIN [Concomitant]
  10. MACRODANTIN [Concomitant]
  11. IRON [Concomitant]
  12. CALCIUM GLUCONATE [Concomitant]

REACTIONS (2)
  - BONE DENSITY DECREASED [None]
  - LETHARGY [None]
